FAERS Safety Report 8508270-5 (Version None)
Quarter: 2012Q2

REPORT INFORMATION
  Report Type: 
  Country: None (occurrence: None)
  Receive Date: 20120405
  Receipt Date: 20090206
  Transmission Date: 20120825
  Serious: Yes (Other)
  Sender: FDA-Public Use
  Company Number: PHEH2009US00982

PATIENT
  Age: 59 Year
  Sex: Female
  Weight: 84.8 kg

DRUGS (14)
  1. METHOTREXATE SODIUM [Concomitant]
  2. CALCIUM CARBONATE [Concomitant]
  3. HYDROCHLOROTHIAZIDE [Concomitant]
  4. LIPITOR [Concomitant]
  5. RECLAST [Suspect]
     Indication: OSTEOPOROSIS
     Dosage: 5 MG, YEARLY, INTRAVENOUS
     Route: 042
     Dates: start: 20071101
  6. RECLAST [Suspect]
     Indication: COMPRESSION FRACTURE
     Dosage: 5 MG, YEARLY, INTRAVENOUS
     Route: 042
     Dates: start: 20071101
  7. RECLAST [Suspect]
     Indication: OSTEOPOROSIS
     Dosage: 5 MG, YEARLY, INTRAVENOUS
     Route: 042
     Dates: start: 20081208
  8. RECLAST [Suspect]
     Indication: COMPRESSION FRACTURE
     Dosage: 5 MG, YEARLY, INTRAVENOUS
     Route: 042
     Dates: start: 20081208
  9. TRAMADOL HCL [Concomitant]
  10. XALATAN [Concomitant]
  11. MICARDIS [Concomitant]
  12. BIAXIN [Concomitant]
  13. PEPCID [Concomitant]
  14. PROCARDIA [Concomitant]

REACTIONS (2)
  - BLOOD CREATININE INCREASED [None]
  - RENAL FAILURE ACUTE [None]
